FAERS Safety Report 8514724-8 (Version None)
Quarter: 2012Q3

REPORT INFORMATION
  Report Type: 
  Country: None (occurrence: None)
  Receive Date: 20120717
  Receipt Date: 20120427
  Transmission Date: 20120928
  Serious: No
  Sender: FDA-Public Use
  Company Number: US-COVIDIEN/TYCO HEALTHCARE/MALLINCKRODT-T201201200

PATIENT
  Sex: Female
  Weight: 49.887 kg

DRUGS (7)
  1. PREMARIN [Concomitant]
     Indication: HORMONE REPLACEMENT THERAPY
     Dosage: UNK
     Route: 048
  2. MORPHINE [Suspect]
     Indication: PAIN
     Dosage: 30 MG SINGLE
     Route: 048
     Dates: start: 20120319, end: 20120319
  3. EXALGO [Concomitant]
     Indication: PAIN
     Dosage: 16 MG, QD
     Route: 048
     Dates: start: 20120314
  4. SYNTHROID [Concomitant]
     Indication: HYPOTHYROIDISM
     Dosage: UNK
     Route: 048
  5. VALIUM [Concomitant]
     Indication: ANXIETY
     Dosage: UNK
     Route: 048
  6. MORPHINE SULFATE [Concomitant]
     Dosage: 240 MG, QD
     Dates: end: 20120313
  7. MULTIVITAMIN                       /00097801/ [Concomitant]
     Indication: SUPPLEMENTATION THERAPY
     Dosage: UNK

REACTIONS (1)
  - ACCIDENTAL EXPOSURE [None]
